FAERS Safety Report 21189830 (Version 1)
Quarter: 2022Q3

REPORT INFORMATION
  Report Type: Spontaneous
  Country: NL (occurrence: NL)
  Receive Date: 20220809
  Receipt Date: 20220809
  Transmission Date: 20221027
  Serious: Yes (Death, Other)
  Sender: FDA-Public Use
  Company Number: NL-AMGEN-NLDSP2022133650

PATIENT

DRUGS (7)
  1. PEGFILGRASTIM [Suspect]
     Active Substance: PEGFILGRASTIM
     Indication: Prophylaxis
     Dosage: 6 MILLIGRAM
     Route: 065
  2. LEUCOVORIN [Concomitant]
     Active Substance: LEUCOVORIN
     Dosage: UNK, Q2WK
  3. FLUOROURACIL [Concomitant]
     Active Substance: FLUOROURACIL
     Dosage: 400 MILLIGRAM/SQ. METER, Q2WK
     Route: 040
  4. IRINOTECAN [Concomitant]
     Active Substance: IRINOTECAN
     Dosage: 180 MILLIGRAM/SQ. METER, Q2WK
  5. OXALIPLATIN [Concomitant]
     Active Substance: OXALIPLATIN
     Dosage: UNK UNK, Q2WK
  6. LEUCOVORIN [Concomitant]
     Active Substance: LEUCOVORIN
     Dosage: 400 MILLIGRAM/SQ. METER
  7. GEMCITABINE [Concomitant]
     Active Substance: GEMCITABINE
     Dosage: UNK

REACTIONS (3)
  - Death [Fatal]
  - Pancreatic carcinoma recurrent [Unknown]
  - Pancreatic carcinoma metastatic [Unknown]
